FAERS Safety Report 9228856 (Version 3)
Quarter: 2013Q2

REPORT INFORMATION
  Report Type: Report from Study
  Country: IT (occurrence: IT)
  Receive Date: 20130412
  Receipt Date: 20130514
  Transmission Date: 20140414
  Serious: Yes (Hospitalization, Other)
  Sender: FDA-Public Use
  Company Number: PHHY2013IT030185

PATIENT
  Age: 20 Year
  Sex: Female
  Weight: 60 kg

DRUGS (1)
  1. FTY 720 [Suspect]
     Indication: RELAPSING-REMITTING MULTIPLE SCLEROSIS
     Dosage: 0.5 MG, QD
     Route: 048
     Dates: start: 20121030, end: 20130222

REACTIONS (17)
  - Vomiting [Recovered/Resolved with Sequelae]
  - Nausea [Recovered/Resolved with Sequelae]
  - Multiple sclerosis relapse [Recovered/Resolved with Sequelae]
  - Central nervous system lesion [Recovered/Resolved with Sequelae]
  - Sensory disturbance [Unknown]
  - Movement disorder [Unknown]
  - Hypoaesthesia [Unknown]
  - Gait disturbance [Unknown]
  - Muscular weakness [Unknown]
  - Urinary incontinence [Unknown]
  - Nystagmus [Unknown]
  - Romberg test positive [Unknown]
  - Extensor plantar response [Unknown]
  - Clonus [Unknown]
  - Hyperreflexia [Unknown]
  - Balance disorder [Recovered/Resolved with Sequelae]
  - Pollakiuria [Unknown]
